FAERS Safety Report 15230674 (Version 1)
Quarter: 2018Q3

REPORT INFORMATION
  Report Type: Spontaneous
  Country: IT (occurrence: IT)
  Receive Date: 20180802
  Receipt Date: 20180802
  Transmission Date: 20181010
  Serious: Yes (Other)
  Sender: FDA-Public Use
  Company Number: IT-AUROBINDO-AUR-APL-2018-038203

PATIENT
  Age: 84 Year
  Sex: Female

DRUGS (8)
  1. LEVOFLOXACIN. [Concomitant]
     Active Substance: LEVOFLOXACIN
     Indication: HELICOBACTER INFECTION
     Dosage: 500 MILLIGRAM
     Route: 048
     Dates: start: 20180707
  2. GLIMEPIRIDE TABLET [Suspect]
     Active Substance: GLIMEPIRIDE
     Indication: DIABETES MELLITUS
     Dosage: 1 MILLIGRAM
     Route: 048
  3. PAROXETINE. [Concomitant]
     Active Substance: PAROXETINE
     Indication: DEPRESSION
     Dosage: 20 MILLIGRAM
     Route: 048
  4. AUGMENTIN [Concomitant]
     Active Substance: AMOXICILLIN\CLAVULANATE POTASSIUM
     Indication: HELICOBACTER INFECTION
     Dosage: 1 GRAM
     Route: 048
     Dates: start: 20180707
  5. PANTOPRAZOLE [Concomitant]
     Active Substance: PANTOPRAZOLE
     Indication: HELICOBACTER INFECTION
     Dosage: 20 MILLIGRAM
     Route: 048
     Dates: start: 20180707
  6. AKINETON [Concomitant]
     Active Substance: BIPERIDEN HYDROCHLORIDE
     Indication: PARKINSON^S DISEASE
     Dosage: 4 MILLIGRAM
     Route: 048
  7. RAMIPRIL. [Concomitant]
     Active Substance: RAMIPRIL
     Indication: HYPERTENSION
     Dosage: 2.5 MILLIGRAM
     Route: 048
  8. EUTIROX [Concomitant]
     Active Substance: LEVOTHYROXINE SODIUM
     Indication: HYPOTHYROIDISM
     Dosage: 25 MICROGRAM
     Route: 048

REACTIONS (2)
  - Cognitive disorder [Recovered/Resolved]
  - Hypoglycaemia [Recovered/Resolved]

NARRATIVE: CASE EVENT DATE: 20180716
